FAERS Safety Report 17756374 (Version 1)
Quarter: 2020Q2

REPORT INFORMATION
  Report Type: Spontaneous
  Country: FR (occurrence: FR)
  Receive Date: 20200507
  Receipt Date: 20200507
  Transmission Date: 20200714
  Serious: Yes (Death, Hospitalization)
  Sender: FDA-Public Use
  Company Number: FR-CADILA HEALTHCARE LIMITED-FR-ZYDUS-021574

PATIENT

DRUGS (10)
  1. VALSARTAN. [Concomitant]
     Active Substance: VALSARTAN
  2. SPIRIVA [Concomitant]
     Active Substance: TIOTROPIUM BROMIDE MONOHYDRATE
  3. RUXOLITINIB [Suspect]
     Active Substance: RUXOLITINIB
     Indication: PRODUCT USED FOR UNKNOWN INDICATION
     Route: 048
     Dates: start: 20170201, end: 20170701
  4. ACIDE FOLIQUE [Concomitant]
     Active Substance: FOLIC ACID
  5. PRAVASTATIN. [Suspect]
     Active Substance: PRAVASTATIN
     Indication: PRODUCT USED FOR UNKNOWN INDICATION
     Route: 048
  6. RABEPRAZOLE SODIQUE [Concomitant]
     Active Substance: RABEPRAZOLE SODIUM
  7. INDACATEROL [Concomitant]
     Active Substance: INDACATEROL
  8. PURINETHOL [Suspect]
     Active Substance: MERCAPTOPURINE
     Indication: MYELOFIBROSIS
     Dosage: 50 MILLIGRAM,50 MG, SCORED TABLET,(INTERVAL :1 DAYS)
     Route: 048
     Dates: start: 20170710, end: 20170725
  9. COUMADINE [Concomitant]
     Active Substance: WARFARIN SODIUM
  10. CHLORHYDRATE DE DILTIAZEM [Concomitant]
     Active Substance: DILTIAZEM HYDROCHLORIDE

REACTIONS (3)
  - Idiopathic pulmonary fibrosis [Not Recovered/Not Resolved]
  - Interstitial lung disease [Not Recovered/Not Resolved]
  - Dyspnoea [Not Recovered/Not Resolved]

NARRATIVE: CASE EVENT DATE: 20170701
